FAERS Safety Report 21774900 (Version 1)
Quarter: 2022Q4

REPORT INFORMATION
  Report Type: Spontaneous
  Country: PH (occurrence: None)
  Receive Date: 20221224
  Receipt Date: 20221224
  Transmission Date: 20230112
  Serious: Yes (Other)
  Sender: FDA-Public Use
  Company Number: PH-ROCHE-3247994

PATIENT
  Age: 61 Year
  Sex: Female

DRUGS (1)
  1. HERCEPTIN [Suspect]
     Active Substance: TRASTUZUMAB
     Indication: HER2 positive breast cancer
     Dosage: 1VIAL
     Route: 058

REACTIONS (4)
  - Metastases to lung [Unknown]
  - Metastases to heart [Unknown]
  - Cardiac tamponade [Unknown]
  - Pericardial excision [Unknown]
